FAERS Safety Report 13412488 (Version 3)
Quarter: 2020Q1

REPORT INFORMATION
  Report Type: Spontaneous
  Country: US (occurrence: US)
  Receive Date: 20170406
  Receipt Date: 20200121
  Transmission Date: 20200409
  Serious: No
  Sender: FDA-Public Use
  Company Number: US-JNJFOC-20170309528

PATIENT
  Sex: Male

DRUGS (9)
  1. RISPERDAL [Suspect]
     Active Substance: RISPERIDONE
     Indication: ATTENTION DEFICIT/HYPERACTIVITY DISORDER
     Dosage: HALF TABLET TWICE DAILY
     Route: 048
     Dates: start: 19970430
  2. RISPERIDONE. [Suspect]
     Active Substance: RISPERIDONE
     Indication: ATTENTION DEFICIT/HYPERACTIVITY DISORDER
     Route: 048
     Dates: start: 20030212, end: 20030311
  3. RISPERDAL [Suspect]
     Active Substance: RISPERIDONE
     Dosage: VARYING DOSES OF 0.5 MG AND 1 MG
     Route: 048
     Dates: start: 20130714, end: 20130717
  4. RISPERDAL [Suspect]
     Active Substance: RISPERIDONE
     Dosage: TWICE A DAY
     Route: 048
     Dates: start: 20030723
  5. RISPERDAL [Suspect]
     Active Substance: RISPERIDONE
     Route: 048
     Dates: start: 20030314
  6. RISPERDAL [Suspect]
     Active Substance: RISPERIDONE
     Indication: PSYCHOTIC DISORDER
     Route: 048
     Dates: start: 20020404, end: 20050505
  7. RISPERDAL [Suspect]
     Active Substance: RISPERIDONE
     Dosage: EVERY DAY NIGHT TIME
     Route: 048
     Dates: start: 20110224
  8. RISPERDAL [Suspect]
     Active Substance: RISPERIDONE
     Dosage: EVERY DAY MORNING TIME
     Route: 048
     Dates: start: 20030221, end: 20030226
  9. RISPERIDONE. [Suspect]
     Active Substance: RISPERIDONE
     Indication: PSYCHOTIC DISORDER
     Route: 048
     Dates: start: 20130718, end: 20130723

REACTIONS (2)
  - Gynaecomastia [Unknown]
  - Emotional distress [Unknown]
